FAERS Safety Report 5083115-7 (Version None)
Quarter: 2006Q3

REPORT INFORMATION
  Report Type: 
  Country: None (occurrence: None)
  Receive Date: 20060720
  Receipt Date: 20060509
  Transmission Date: 20061208
  Serious: Yes (Death, Hospitalization)
  Sender: FDA-Public Use
  Company Number: 2006063114

PATIENT
  Age: 57 Year
  Sex: Male
  Weight: 74.9 kg

DRUGS (1)
  1. CELEBREX [Suspect]
     Indication: ARTHRITIS
     Dosage: 400 MG (200 MG, 2 IN 1 D)
     Dates: start: 20020131, end: 20020830

REACTIONS (2)
  - DRUG INEFFECTIVE [None]
  - MYOCARDIAL INFARCTION [None]
